FAERS Safety Report 20167329 (Version 1)
Quarter: 2021Q4

REPORT INFORMATION
  Report Type: Report from Study
  Country: DE (occurrence: DE)
  Receive Date: 20211209
  Receipt Date: 20211209
  Transmission Date: 20220304
  Serious: Yes (Hospitalization, Other)
  Sender: FDA-Public Use
  Company Number: DE-NOVARTISPH-NVSC2021DE276562

PATIENT
  Sex: Male

DRUGS (5)
  1. COSENTYX [Suspect]
     Active Substance: SECUKINUMAB
     Indication: Psoriatic arthropathy
     Dosage: UNK
     Route: 065
  2. METHOTREXATE [Concomitant]
     Active Substance: METHOTREXATE
     Indication: Product used for unknown indication
     Dosage: 15 MG
     Route: 048
     Dates: start: 20200922
  3. METHOTREXATE [Concomitant]
     Active Substance: METHOTREXATE
     Dosage: 20 MG
     Route: 048
     Dates: start: 20201215, end: 20210421
  4. ETORICOXIB [Concomitant]
     Active Substance: ETORICOXIB
     Indication: Product used for unknown indication
     Dosage: 90 MG
     Route: 065
     Dates: start: 20210411, end: 20210418
  5. NAPROXEN [Concomitant]
     Active Substance: NAPROXEN
     Indication: Product used for unknown indication
     Dosage: 500 MG
     Route: 065
     Dates: start: 20210421

REACTIONS (5)
  - Osteonecrosis [Unknown]
  - Arthralgia [Unknown]
  - Onycholysis [Unknown]
  - Bursitis [Unknown]
  - Psoriasis [Unknown]

NARRATIVE: CASE EVENT DATE: 20210201
